FAERS Safety Report 9078999 (Version 1)
Quarter: 2013Q1

REPORT INFORMATION
  Report Type: Spontaneous
  Country: US (occurrence: US)
  Receive Date: 20130215
  Receipt Date: 20130215
  Transmission Date: 20140127
  Serious: Yes (Life-Threatening, Other)
  Sender: FDA-Public Use
  Company Number: US-ELI_LILLY_AND_COMPANY-US201302003336

PATIENT
  Age: 48 Year
  Sex: Female
  Weight: 54.42 kg

DRUGS (2)
  1. EFFIENT [Suspect]
     Dosage: 10 MG, UNK
  2. COUMADIN [Concomitant]

REACTIONS (2)
  - Coronary artery dissection [Unknown]
  - Vaginal haemorrhage [Unknown]
